FAERS Safety Report 14475077 (Version 1)
Quarter: 2018Q1

REPORT INFORMATION
  Report Type: Spontaneous
  Country: US (occurrence: US)
  Receive Date: 20180131
  Receipt Date: 20180131
  Transmission Date: 20180509
  Serious: No
  Sender: FDA-Public Use
  Company Number: None

PATIENT

DRUGS (2)
  1. STERILE WATER FOR IRRIGATION [Suspect]
     Active Substance: WATER
     Dates: start: 20180108, end: 20180118
  2. STERILE WATER FOR INJECTION [Suspect]
     Active Substance: WATER

REACTIONS (2)
  - Product packaging confusion [None]
  - Wrong drug administered [None]
